FAERS Safety Report 9681634 (Version 1)
Quarter: 2013Q4

REPORT INFORMATION
  Report Type: Spontaneous
  Country: US (occurrence: US)
  Receive Date: 20131111
  Receipt Date: 20131111
  Transmission Date: 20140711
  Serious: Yes (Hospitalization)
  Sender: FDA-Public Use
  Company Number: US-PFIZER INC-2013319020

PATIENT
  Age: 38 Year
  Sex: Male
  Weight: 85.26 kg

DRUGS (1)
  1. PROTONIX [Suspect]
     Indication: REFLUX GASTRITIS
     Dosage: 40 MG, DAILY

REACTIONS (1)
  - Laryngeal oedema [Unknown]
